FAERS Safety Report 9502647 (Version 1)
Quarter: 2013Q3

REPORT INFORMATION
  Report Type: Spontaneous
  Country: US (occurrence: US)
  Receive Date: 20130906
  Receipt Date: 20130906
  Transmission Date: 20140515
  Serious: Yes (Other)
  Sender: FDA-Public Use
  Company Number: US-ASTRAZENECA-2013SE66589

PATIENT
  Age: 67 Year
  Sex: Male
  Weight: 74.8 kg

DRUGS (14)
  1. SYMBICORT [Suspect]
     Indication: CHRONIC OBSTRUCTIVE PULMONARY DISEASE
     Dosage: 320MCG BID
     Route: 055
     Dates: start: 2010, end: 201308
  2. PRILOSEC OTC [Suspect]
     Indication: DYSPEPSIA
     Dosage: DAILY
     Route: 048
  3. FLUCONAZOLE [Concomitant]
     Indication: PHARYNGITIS
     Dosage: DAILY
     Route: 048
  4. CLOPIDOGREL [Concomitant]
     Indication: STENT PLACEMENT
     Route: 048
  5. CLOPIDOGREL [Concomitant]
     Indication: DEVICE OCCLUSION
     Route: 048
  6. ISOSORBIDE MONONITRATE [Concomitant]
     Route: 048
  7. LEVOTHYROXINE [Concomitant]
     Indication: THYROID DISORDER
     Route: 048
  8. PRAVASTATIN [Concomitant]
     Indication: BLOOD CHOLESTEROL ABNORMAL
     Route: 048
  9. VENTOLIN HFA [Concomitant]
     Indication: CHRONIC OBSTRUCTIVE PULMONARY DISEASE
     Dosage: PRN
     Route: 055
  10. ASPIRIN [Concomitant]
     Indication: STENT PLACEMENT
     Route: 048
  11. ASPIRIN [Concomitant]
     Indication: DEVICE OCCLUSION
     Route: 048
  12. MULTIVITAMIN [Concomitant]
     Indication: VITAMIN SUPPLEMENTATION
     Dosage: DAILY
     Route: 048
  13. COQ10 [Concomitant]
     Indication: SUPPLEMENTATION THERAPY
     Dosage: DAILY
     Route: 048
  14. MILK THISTLE [Concomitant]
     Indication: SUPPLEMENTATION THERAPY
     Dosage: DAILY
     Route: 048

REACTIONS (4)
  - Peripheral arterial occlusive disease [Unknown]
  - Laryngitis [Unknown]
  - Dry throat [Not Recovered/Not Resolved]
  - Pharyngitis [Unknown]
